FAERS Safety Report 9165473 (Version 2)
Quarter: 2013Q1

REPORT INFORMATION
  Report Type: Spontaneous
  Country: ES (occurrence: None)
  Receive Date: 20130228
  Receipt Date: 20130328
  Transmission Date: 20140127
  Serious: Yes (Hospitalization)
  Sender: FDA-Public Use
  Company Number: JPI-P-029996

PATIENT
  Age: 60 Year
  Sex: Male

DRUGS (8)
  1. XYREM [Suspect]
     Indication: CATAPLEXY
     Route: 048
     Dates: start: 20120710
  2. VENLAFAXINE [Concomitant]
  3. UNSPECIFIED MEDICATION [Concomitant]
  4. ENALAPRIL [Concomitant]
  5. PRAVASTATIN [Concomitant]
  6. PARACETAMOL [Concomitant]
  7. UNSPECIFIED MEDICATION [Concomitant]
  8. MODAFINIL [Concomitant]

REACTIONS (2)
  - Pseudomonas infection [None]
  - Postoperative fever [None]
